FAERS Safety Report 10775428 (Version 3)
Quarter: 2015Q2

REPORT INFORMATION
  Report Type: Spontaneous
  Country: US (occurrence: None)
  Receive Date: 20150205
  Receipt Date: 20150416
  Transmission Date: 20150821
  Serious: Yes (Other)
  Sender: FDA-Public Use
  Company Number: ADR-2015-00244

PATIENT
  Age: 57 Year
  Sex: Female

DRUGS (2)
  1. BACLOFEN INTRATHECAL (2000 MCG/ML) [Suspect]
     Active Substance: BACLOFEN
     Indication: MUSCLE SPASTICITY
  2. ORAL BACLOFEN [Suspect]
     Active Substance: BACLOFEN

REACTIONS (17)
  - Mobility decreased [None]
  - Device inversion [None]
  - Hypoaesthesia [None]
  - Muscle spasticity [None]
  - Suture related complication [None]
  - Procedural pain [None]
  - Delayed recovery from anaesthesia [None]
  - No therapeutic response [None]
  - Pain [None]
  - Device dislocation [None]
  - Device kink [None]
  - Crying [None]
  - Device malfunction [None]
  - Depressed level of consciousness [None]
  - Joint dislocation [None]
  - Oxygen saturation decreased [None]
  - Device failure [None]
